FAERS Safety Report 5310665-8 (Version None)
Quarter: 2007Q2

REPORT INFORMATION
  Report Type: 
  Country: None (occurrence: None)
  Receive Date: 20070428
  Receipt Date: 20070416
  Transmission Date: 20071010
  Serious: Yes (Other)
  Sender: FDA-Public Use
  Company Number: JP-PFIZER INC-2007031332

PATIENT

DRUGS (1)
  1. GABAPEN [Suspect]
     Route: 048

REACTIONS (2)
  - OBSESSIVE THOUGHTS [None]
  - PERSECUTORY DELUSION [None]
